FAERS Safety Report 15668115 (Version 1)
Quarter: 2018Q4

REPORT INFORMATION
  Report Type: Spontaneous
  Country: AU (occurrence: AU)
  Receive Date: 20181129
  Receipt Date: 20181129
  Transmission Date: 20190205
  Serious: Yes (Other)
  Sender: FDA-Public Use
  Company Number: AU-009507513-1810AUS007662

PATIENT
  Age: 48 Year
  Sex: Female
  Weight: 74.6 kg

DRUGS (1)
  1. IMPLANON [Suspect]
     Active Substance: ETONOGESTREL
     Indication: AMENORRHOEA
     Dosage: 1 IMPLANT IN THE LEFT FOREARM
     Route: 059
     Dates: start: 20180824, end: 20181025

REACTIONS (5)
  - Implant site paraesthesia [Not Recovered/Not Resolved]
  - Skin disorder [Not Recovered/Not Resolved]
  - Device deployment issue [Recovered/Resolved]
  - Ulnar nerve injury [Unknown]
  - Drug effective for unapproved indication [Unknown]

NARRATIVE: CASE EVENT DATE: 2018
